FAERS Safety Report 16334352 (Version 3)
Quarter: 2019Q3

REPORT INFORMATION
  Report Type: Report from Study
  Country: NL (occurrence: NL)
  Receive Date: 20190520
  Receipt Date: 20190927
  Transmission Date: 20191004
  Serious: Yes (Death, Hospitalization)
  Sender: FDA-Public Use
  Company Number: NL-EXELIXIS-XL18419021134

PATIENT
  Age: 65 Year
  Sex: Male

DRUGS (1)
  1. CABOZANTINIB [Suspect]
     Active Substance: CABOZANTINIB
     Indication: RENAL CELL CARCINOMA
     Dosage: 60 MG,QD
     Route: 048
     Dates: start: 20190416, end: 20190513

REACTIONS (2)
  - Pneumonia [Fatal]
  - Acute coronary syndrome [Unknown]

NARRATIVE: CASE EVENT DATE: 20190506
